FAERS Safety Report 19518521 (Version 1)
Quarter: 2021Q3

REPORT INFORMATION
  Report Type: Spontaneous
  Country: DE (occurrence: DE)
  Receive Date: 20210712
  Receipt Date: 20210712
  Transmission Date: 20211014
  Serious: Yes (Hospitalization)
  Sender: FDA-Public Use
  Company Number: NVSC2021DE146685

PATIENT
  Age: 63 Year
  Sex: Male
  Weight: 90 kg

DRUGS (4)
  1. IBUPROFEN. [Suspect]
     Active Substance: IBUPROFEN
     Indication: PRODUCT USED FOR UNKNOWN INDICATION
     Dosage: 400 MG ( EIN BIS DREI MAL TAGLICH IN DER LETZTEN WOCHE, TABLETTEN)
     Route: 048
  2. REKAWAN [Concomitant]
     Active Substance: POTASSIUM CHLORIDE
     Indication: PRODUCT USED FOR UNKNOWN INDICATION
     Dosage: UNK (2?2?2?0)
     Route: 048
  3. NICOTINELL [Concomitant]
     Active Substance: NICOTINE
     Indication: PRODUCT USED FOR UNKNOWN INDICATION
     Dosage: UNK (14MG/24STUNDEN, TAGLICH, PFLASTER TRANSDERMAL)
     Route: 062
  4. ERYFER [Concomitant]
     Indication: PRODUCT USED FOR UNKNOWN INDICATION
     Dosage: 100 MG, QD
     Route: 048

REACTIONS (6)
  - Haematuria [Unknown]
  - General physical health deterioration [Unknown]
  - Product prescribing error [Unknown]
  - Contraindicated product administered [Unknown]
  - Nocturia [Unknown]
  - Oedema peripheral [Unknown]
